FAERS Safety Report 20790927 (Version 3)
Quarter: 2023Q2

REPORT INFORMATION
  Report Type: Spontaneous
  Country: CA (occurrence: CA)
  Receive Date: 20220505
  Receipt Date: 20230530
  Transmission Date: 20230722
  Serious: Yes (Other)
  Sender: FDA-Public Use
  Company Number: CA-HLS-202200886

PATIENT
  Sex: Female

DRUGS (108)
  1. RANITIDINE [Suspect]
     Active Substance: RANITIDINE
     Indication: Product used for unknown indication
     Dosage: 2 EVERY 1 DAYS
     Route: 065
  2. FLUMIST QUADRIVALENT [Suspect]
     Active Substance: INFLUENZA A VIRUS A/CALIFORNIA/7/2009 (H1N1) LIVE(ATTENUATED) ANTIGEN\INFLUENZA A VIRUS A/TEXAS/50/2
     Indication: Product used for unknown indication
     Dosage: NOT SPECIFIED DOSAGE FORM
     Route: 065
  3. REXULTI [Suspect]
     Active Substance: BREXPIPRAZOLE
     Indication: Product used for unknown indication
     Dosage: TABLETS DOSAGE FORM
     Route: 065
  4. DIVALPROEX SODIUM [Suspect]
     Active Substance: DIVALPROEX SODIUM
     Indication: Product used for unknown indication
     Dosage: 2 EVERY 1 DAYS?NOT SPECIFIED DOSAGE FORM
     Route: 065
  5. ACETAMINOPHEN [Suspect]
     Active Substance: ACETAMINOPHEN
     Indication: Pain
     Dosage: AMOUNT: 2 DOSAGE FORMS?NOT SPECIFIED DOSAGE FORM
     Route: 065
  6. ACETAMINOPHEN [Suspect]
     Active Substance: ACETAMINOPHEN
     Indication: Pyrexia
     Dosage: AMOUNT: 2 DOSAGE FORMS?NOT SPECIFIED DOSAGE FORM
     Route: 065
  7. ACETAMINOPHEN [Suspect]
     Active Substance: ACETAMINOPHEN
     Indication: Pain
     Dosage: NOT SPECIFIED DOSAGE FORM
     Route: 065
  8. ACETAMINOPHEN [Suspect]
     Active Substance: ACETAMINOPHEN
     Indication: Pyrexia
     Dosage: NOT SPECIFIED DOSAGE FORM
     Route: 065
  9. BREXPIPRAZOLE [Suspect]
     Active Substance: BREXPIPRAZOLE
     Indication: Rash
     Dosage: AMOUNT: 1 DOSAGE FORMS?NOT SPECIFIED DOSAGE FORM
     Route: 067
  10. BREXPIPRAZOLE [Suspect]
     Active Substance: BREXPIPRAZOLE
     Indication: Product used for unknown indication
     Dosage: AMOUNT: 1 DOSAGE FORMS?NOT SPECIFIED DOSAGE FORM
     Route: 067
  11. BREXPIPRAZOLE [Suspect]
     Active Substance: BREXPIPRAZOLE
     Indication: Rash
     Dosage: 1 EVERY 1 DAYS?AMOUNT: 1 DOSAGE FORMS
     Route: 065
  12. BREXPIPRAZOLE [Suspect]
     Active Substance: BREXPIPRAZOLE
     Indication: Product used for unknown indication
     Dosage: 1 EVERY 1 DAYS?AMOUNT: 1 DOSAGE FORMS
     Route: 065
  13. BREXPIPRAZOLE [Suspect]
     Active Substance: BREXPIPRAZOLE
     Indication: Rash
     Dosage: 1 EVERY 1 DAYS?AMOUNT: 3 DOSAGE FORMS
     Route: 065
  14. BREXPIPRAZOLE [Suspect]
     Active Substance: BREXPIPRAZOLE
     Indication: Product used for unknown indication
     Dosage: 1 EVERY 1 DAYS?AMOUNT: 3 DOSAGE FORMS
     Route: 065
  15. BREXPIPRAZOLE [Suspect]
     Active Substance: BREXPIPRAZOLE
     Indication: Rash
     Dosage: 2 EVERY 1 DAYS?AMOUNT: 1 DOSAGE FORMS?NOT SPECIFIED DOSAGE FORM
     Route: 065
  16. BREXPIPRAZOLE [Suspect]
     Active Substance: BREXPIPRAZOLE
     Indication: Product used for unknown indication
     Dosage: 2 EVERY 1 DAYS?AMOUNT: 1 DOSAGE FORMS?NOT SPECIFIED DOSAGE FORM
     Route: 065
  17. BREXPIPRAZOLE [Suspect]
     Active Substance: BREXPIPRAZOLE
     Indication: Rash
     Route: 065
  18. BREXPIPRAZOLE [Suspect]
     Active Substance: BREXPIPRAZOLE
     Indication: Product used for unknown indication
     Route: 065
  19. BREXPIPRAZOLE [Suspect]
     Active Substance: BREXPIPRAZOLE
     Indication: Rash
     Dosage: NOT SPECIFIED DOSAGE FORM
     Route: 065
  20. BREXPIPRAZOLE [Suspect]
     Active Substance: BREXPIPRAZOLE
     Indication: Product used for unknown indication
     Dosage: NOT SPECIFIED DOSAGE FORM
     Route: 065
  21. INFLUENZA VIRUS VACCINE [Suspect]
     Active Substance: INFLUENZA VIRUS VACCINE
     Indication: Mood altered
     Dosage: AMOUNT: 1 DOSAGE FORMS?NOT SPECIFIED DOSAGE FORM
     Route: 065
  22. INFLUENZA VIRUS VACCINE [Suspect]
     Active Substance: INFLUENZA VIRUS VACCINE
     Indication: Product used for unknown indication
     Dosage: AMOUNT: 1 DOSAGE FORMS?NOT SPECIFIED DOSAGE FORM
     Route: 065
  23. INFLUENZA VIRUS VACCINE [Suspect]
     Active Substance: INFLUENZA VIRUS VACCINE
     Indication: Mood altered
     Dosage: 1 EVERY 1 DAYS?AMOUNT: 1 DOSAGE FORMS
     Route: 065
  24. INFLUENZA VIRUS VACCINE [Suspect]
     Active Substance: INFLUENZA VIRUS VACCINE
     Indication: Product used for unknown indication
     Dosage: 1 EVERY 1 DAYS?AMOUNT: 1 DOSAGE FORMS
     Route: 065
  25. INFLUENZA VIRUS VACCINE [Suspect]
     Active Substance: INFLUENZA VIRUS VACCINE
     Indication: Mood altered
     Dosage: 2 EVERY 1 DAYS?AMOUNT: 1 DOSAGE FORMS
     Route: 065
  26. INFLUENZA VIRUS VACCINE [Suspect]
     Active Substance: INFLUENZA VIRUS VACCINE
     Indication: Product used for unknown indication
     Dosage: 2 EVERY 1 DAYS?AMOUNT: 1 DOSAGE FORMS
     Route: 065
  27. INFLUENZA VIRUS VACCINE [Suspect]
     Active Substance: INFLUENZA VIRUS VACCINE
     Indication: Mood altered
     Route: 065
  28. INFLUENZA VIRUS VACCINE [Suspect]
     Active Substance: INFLUENZA VIRUS VACCINE
     Indication: Product used for unknown indication
     Route: 065
  29. INFLUENZA VIRUS VACCINE [Suspect]
     Active Substance: INFLUENZA VIRUS VACCINE
     Indication: Mood altered
     Route: 065
  30. INFLUENZA VIRUS VACCINE [Suspect]
     Active Substance: INFLUENZA VIRUS VACCINE
     Indication: Product used for unknown indication
     Route: 065
  31. RANITIDINE HYDROCHLORIDE [Suspect]
     Active Substance: RANITIDINE HYDROCHLORIDE
     Indication: Product used for unknown indication
     Dosage: 2 EVERY 1 DAYS?AMOUNT: 1 DOSAGE FORMS
     Route: 065
  32. RANITIDINE HYDROCHLORIDE [Suspect]
     Active Substance: RANITIDINE HYDROCHLORIDE
     Indication: Product used for unknown indication
     Dosage: TABLETS DOSAGE FORM
     Route: 065
  33. SIMETHICONE (DIMETHICONE) [Suspect]
     Active Substance: DIMETHICONE
     Indication: Abdominal discomfort
     Dosage: AMOUNT: 30 ML
     Route: 065
  34. SIMETHICONE (DIMETHICONE) [Suspect]
     Active Substance: DIMETHICONE
     Indication: Product used for unknown indication
     Dosage: AMOUNT: 30 ML
     Route: 065
  35. SIMETHICONE (DIMETHICONE) [Suspect]
     Active Substance: DIMETHICONE
     Indication: Abdominal discomfort
     Dosage: 2 EVERY 1 DAYS?AMOUNT: 1 DOSAGE FORMS?NOT SPECIFIED DOSAGE FORM
     Route: 065
  36. SIMETHICONE (DIMETHICONE) [Suspect]
     Active Substance: DIMETHICONE
     Indication: Product used for unknown indication
     Dosage: 2 EVERY 1 DAYS?AMOUNT: 1 DOSAGE FORMS?NOT SPECIFIED DOSAGE FORM
     Route: 065
  37. VITAMIN D3 [Suspect]
     Active Substance: CHOLECALCIFEROL
     Indication: Insomnia
     Dosage: AMOUNT: 1 DOSAGE FORMS?CAPSULES DOSAGE FORM
     Route: 065
  38. VITAMIN D3 [Suspect]
     Active Substance: CHOLECALCIFEROL
     Indication: Product used for unknown indication
     Dosage: AMOUNT: 1 DOSAGE FORMS?CAPSULES DOSAGE FORM
     Route: 065
  39. VITAMIN D3 [Suspect]
     Active Substance: CHOLECALCIFEROL
     Indication: Insomnia
     Dosage: 1 EVERY 1 DAYS?AMOUNT: 1 DOSAGE FORMS
     Route: 065
  40. VITAMIN D3 [Suspect]
     Active Substance: CHOLECALCIFEROL
     Indication: Product used for unknown indication
     Dosage: 1 EVERY 1 DAYS?AMOUNT: 1 DOSAGE FORMS
     Route: 065
  41. VITAMIN D3 [Suspect]
     Active Substance: CHOLECALCIFEROL
     Indication: Insomnia
     Dosage: 1 EVERY 1 DAYS?AMOUNT: 1 DOSAGE FORMS?TABLETS DOSAGE FORM
     Route: 065
  42. VITAMIN D3 [Suspect]
     Active Substance: CHOLECALCIFEROL
     Indication: Product used for unknown indication
     Dosage: 1 EVERY 1 DAYS?AMOUNT: 1 DOSAGE FORMS?TABLETS DOSAGE FORM
     Route: 065
  43. AMLODIPINE [Suspect]
     Active Substance: AMLODIPINE BESYLATE
     Indication: Rash
     Dosage: 1 EVERY 1 DAYS?AMOUNT: 1 DOSAGE FORMS
     Route: 065
  44. AMLODIPINE [Suspect]
     Active Substance: AMLODIPINE BESYLATE
     Indication: Product used for unknown indication
     Dosage: 1 EVERY 1 DAYS?AMOUNT: 1 DOSAGE FORMS
     Route: 065
  45. AMLODIPINE [Suspect]
     Active Substance: AMLODIPINE BESYLATE
     Indication: Rash
     Dosage: 1 EVERY 1 DAYS?AMOUNT: 1 DOSAGE FORMS?TABLETS DOSAGE FORM
     Route: 065
  46. AMLODIPINE [Suspect]
     Active Substance: AMLODIPINE BESYLATE
     Indication: Product used for unknown indication
     Dosage: 1 EVERY 1 DAYS?AMOUNT: 1 DOSAGE FORMS?TABLETS DOSAGE FORM
     Route: 065
  47. AMLODIPINE [Suspect]
     Active Substance: AMLODIPINE BESYLATE
     Indication: Rash
     Dosage: 1 EVERY 1 DAYS?AMOUNT: 3 DOSAGE FORMS
     Route: 065
  48. AMLODIPINE [Suspect]
     Active Substance: AMLODIPINE BESYLATE
     Indication: Product used for unknown indication
     Dosage: 1 EVERY 1 DAYS?AMOUNT: 3 DOSAGE FORMS
     Route: 065
  49. AMLODIPINE [Suspect]
     Active Substance: AMLODIPINE BESYLATE
     Indication: Rash
     Dosage: NOT SPECIFIED DOSAGE FORM
     Route: 065
  50. AMLODIPINE [Suspect]
     Active Substance: AMLODIPINE BESYLATE
     Indication: Product used for unknown indication
     Dosage: NOT SPECIFIED DOSAGE FORM
     Route: 065
  51. DIVIGEL [Suspect]
     Active Substance: ESTRADIOL
     Indication: Product used for unknown indication
     Route: 065
  52. VALPROIC ACID [Suspect]
     Active Substance: VALPROIC ACID
     Indication: Insomnia
     Dosage: NOT SPECIFIED DOSAGE FORM
     Route: 065
  53. VALPROIC ACID [Suspect]
     Active Substance: VALPROIC ACID
     Indication: Product used for unknown indication
     Dosage: NOT SPECIFIED DOSAGE FORM
     Route: 065
  54. VALPROIC ACID [Suspect]
     Active Substance: VALPROIC ACID
     Indication: Insomnia
     Dosage: TABLETS DOSAGE FORM
     Route: 065
  55. VALPROIC ACID [Suspect]
     Active Substance: VALPROIC ACID
     Indication: Product used for unknown indication
     Dosage: TABLETS DOSAGE FORM
     Route: 065
  56. ACETAMINOPHEN AND CAFFEINE [Suspect]
     Active Substance: ACETAMINOPHEN\CAFFEINE
     Indication: Pain
     Dosage: AMOUNT: 3 DOSAGE FORMS?NOT SPECIFIED DOSAGE FORM
     Route: 065
  57. ACETAMINOPHEN AND CAFFEINE [Suspect]
     Active Substance: ACETAMINOPHEN\CAFFEINE
     Indication: Pyrexia
     Dosage: AMOUNT: 3 DOSAGE FORMS?NOT SPECIFIED DOSAGE FORM
     Route: 065
  58. ACETAMINOPHEN AND CAFFEINE [Suspect]
     Active Substance: ACETAMINOPHEN\CAFFEINE
     Indication: Pain
     Dosage: 2 EVERY 1 DAYS?AMOUNT: 2 DOSAGE FORMS
     Route: 065
  59. ACETAMINOPHEN AND CAFFEINE [Suspect]
     Active Substance: ACETAMINOPHEN\CAFFEINE
     Indication: Pyrexia
     Dosage: 2 EVERY 1 DAYS?AMOUNT: 2 DOSAGE FORMS
     Route: 065
  60. ACETAMINOPHEN AND CAFFEINE [Suspect]
     Active Substance: ACETAMINOPHEN\CAFFEINE
     Indication: Pain
     Route: 065
  61. ACETAMINOPHEN AND CAFFEINE [Suspect]
     Active Substance: ACETAMINOPHEN\CAFFEINE
     Indication: Pyrexia
     Route: 065
  62. ACETAMINOPHEN\PHENYLEPHRINE HYDROCHLORIDE [Suspect]
     Active Substance: ACETAMINOPHEN\PHENYLEPHRINE HYDROCHLORIDE
     Indication: Product used for unknown indication
     Route: 065
  63. ALUMINUM HYDROXIDE [Suspect]
     Active Substance: ALUMINUM HYDROXIDE
     Indication: Abdominal discomfort
     Dosage: AMOUNT: 30 ML
     Route: 048
  64. ALUMINUM HYDROXIDE [Suspect]
     Active Substance: ALUMINUM HYDROXIDE
     Indication: Abdominal discomfort
     Route: 065
  65. AMLODIPINE BESYLATE [Suspect]
     Active Substance: AMLODIPINE BESYLATE
     Indication: Product used for unknown indication
     Dosage: 1 EVERY 1 DAYS?AMOUNT: 1 DOSAGE FORMS
     Route: 065
  66. ARIPIPRAZOLE [Suspect]
     Active Substance: ARIPIPRAZOLE
     Indication: Product used for unknown indication
     Route: 065
  67. ARIPIPRAZOLE [Suspect]
     Active Substance: ARIPIPRAZOLE
     Indication: Product used for unknown indication
     Dosage: NOT SPECIFIED DOSAGE FORM
     Route: 065
  68. CHOLECALCIFEROL [Suspect]
     Active Substance: CHOLECALCIFEROL
     Indication: Product used for unknown indication
     Dosage: AMOUNT: 1 DOSAGE FORMS
     Route: 065
  69. CHOLECALCIFEROL [Suspect]
     Active Substance: CHOLECALCIFEROL
     Indication: Product used for unknown indication
     Dosage: NOT SPECIFIED DOSAGE FORM
     Route: 065
  70. CLOTRIMAZOLE [Suspect]
     Active Substance: CLOTRIMAZOLE
     Indication: Rash
     Dosage: 1 EVERY 1 DAYS?AMOUNT: 2 DOSAGE FORMS?NOT SPECIFIED DOSAGE FORM
     Route: 065
  71. CLOTRIMAZOLE [Suspect]
     Active Substance: CLOTRIMAZOLE
     Indication: Rash
     Route: 065
  72. CLOZAPINE [Suspect]
     Active Substance: CLOZAPINE
     Indication: Product used for unknown indication
     Dosage: 1 EVERY 1 DAYS?AMOUNT: 1 DOSAGE FORMS
     Route: 065
  73. CLOZAPINE [Suspect]
     Active Substance: CLOZAPINE
     Indication: Product used for unknown indication
     Dosage: 1 EVERY 1 DAYS?AMOUNT: 1 DOSAGE FORMS?TABLETS DOSAGE FORM
     Route: 065
  74. CLOZAPINE [Suspect]
     Active Substance: CLOZAPINE
     Indication: Product used for unknown indication
     Dosage: 1 EVERY 1 DAYS?AMOUNT: 3 DOSAGE FORMS
     Route: 065
  75. CLOZAPINE [Suspect]
     Active Substance: CLOZAPINE
     Indication: Product used for unknown indication
     Route: 065
  76. CONJUGATED ESTROGENS [Suspect]
     Active Substance: ESTROGENS, CONJUGATED
     Indication: Product used for unknown indication
     Route: 065
  77. CONJUGATED ESTROGENS [Suspect]
     Active Substance: ESTROGENS, CONJUGATED
     Indication: Product used for unknown indication
     Route: 065
  78. CONJUGATED ESTROGENS [Suspect]
     Active Substance: ESTROGENS, CONJUGATED
     Indication: Product used for unknown indication
     Dosage: NOT SPECIFIED DOSAGE FORM
     Route: 061
  79. ESTRADIOL [Suspect]
     Active Substance: ESTRADIOL
     Indication: Product used for unknown indication
     Dosage: AMOUNT: 1 DOSAGE FORMS
     Route: 067
  80. ESTRADIOL [Suspect]
     Active Substance: ESTRADIOL
     Indication: Product used for unknown indication
     Dosage: AMOUNT: 1 DOSAGE FORMS?NOT SPECIFIED DOSAGE FORM
     Route: 067
  81. LEVOTHYROXINE SODIUM [Suspect]
     Active Substance: LEVOTHYROXINE SODIUM
     Indication: Product used for unknown indication
     Dosage: AMOUNT: 1 DOSAGE FORMS?NOT SPECIFIED DOSAGE FORM
     Route: 065
  82. OLANZAPINE [Suspect]
     Active Substance: OLANZAPINE
     Indication: Mood altered
     Dosage: 1 EVERY 1 DAYS?AMOUNT: 1 DOSAGE FORMS
     Route: 065
  83. OLANZAPINE [Suspect]
     Active Substance: OLANZAPINE
     Indication: Mood altered
     Dosage: 1 EVERY 1 DAYS?AMOUNT: 2 DOSAGE FORMS?NOT SPECIFIED DOSAGE FORM
     Route: 065
  84. OLANZAPINE [Suspect]
     Active Substance: OLANZAPINE
     Indication: Mood altered
     Route: 065
  85. PREMARIN WITH METHYLTESTOSTERONE [Suspect]
     Active Substance: ESTROGENS, CONJUGATED\METHYLTESTOSTERONE
     Indication: Abdominal discomfort
     Dosage: AMOUNT: 1 DOSAGE FORMS
     Route: 065
  86. PREMARIN WITH METHYLTESTOSTERONE [Suspect]
     Active Substance: ESTROGENS, CONJUGATED\METHYLTESTOSTERONE
     Indication: Product used for unknown indication
     Dosage: AMOUNT: 1 DOSAGE FORMS
     Route: 065
  87. PREMARIN WITH METHYLTESTOSTERONE [Suspect]
     Active Substance: ESTROGENS, CONJUGATED\METHYLTESTOSTERONE
     Indication: Abdominal discomfort
     Dosage: AMOUNT: 1 DOSAGE FORMS?CAPSULES DOSAGE FORM
     Route: 065
  88. PREMARIN WITH METHYLTESTOSTERONE [Suspect]
     Active Substance: ESTROGENS, CONJUGATED\METHYLTESTOSTERONE
     Indication: Product used for unknown indication
     Dosage: AMOUNT: 1 DOSAGE FORMS?CAPSULES DOSAGE FORM
     Route: 065
  89. PREMARIN WITH METHYLTESTOSTERONE [Suspect]
     Active Substance: ESTROGENS, CONJUGATED\METHYLTESTOSTERONE
     Indication: Abdominal discomfort
     Dosage: AMOUNT: 5 GRAM?NOT SPECIFIED DOSAGE FORM
     Route: 065
  90. PREMARIN WITH METHYLTESTOSTERONE [Suspect]
     Active Substance: ESTROGENS, CONJUGATED\METHYLTESTOSTERONE
     Indication: Product used for unknown indication
     Dosage: AMOUNT: 5 GRAM?NOT SPECIFIED DOSAGE FORM
     Route: 065
  91. PREMARIN WITH METHYLTESTOSTERONE [Suspect]
     Active Substance: ESTROGENS, CONJUGATED\METHYLTESTOSTERONE
     Indication: Abdominal discomfort
     Dosage: 1 EVERY 1 DAYS?AMOUNT: 2 DOSAGE FORMS
     Route: 065
  92. PREMARIN WITH METHYLTESTOSTERONE [Suspect]
     Active Substance: ESTROGENS, CONJUGATED\METHYLTESTOSTERONE
     Indication: Product used for unknown indication
     Dosage: 1 EVERY 1 DAYS?AMOUNT: 2 DOSAGE FORMS
     Route: 065
  93. PREMARIN WITH METHYLTESTOSTERONE [Suspect]
     Active Substance: ESTROGENS, CONJUGATED\METHYLTESTOSTERONE
     Indication: Abdominal discomfort
     Dosage: 1 EVERY 1 DAYS?AMOUNT: 2 DOSAGE FORMS?NOT SPECIFIED DOSAGE FORM
     Route: 065
  94. PREMARIN WITH METHYLTESTOSTERONE [Suspect]
     Active Substance: ESTROGENS, CONJUGATED\METHYLTESTOSTERONE
     Indication: Product used for unknown indication
     Dosage: 1 EVERY 1 DAYS?AMOUNT: 2 DOSAGE FORMS?NOT SPECIFIED DOSAGE FORM
     Route: 065
  95. PREMARIN WITH METHYLTESTOSTERONE [Suspect]
     Active Substance: ESTROGENS, CONJUGATED\METHYLTESTOSTERONE
     Indication: Abdominal discomfort
     Dosage: 2 EVERY 1 DAYS?AMOUNT: 1 DOSAGE FORMS
     Route: 065
  96. PREMARIN WITH METHYLTESTOSTERONE [Suspect]
     Active Substance: ESTROGENS, CONJUGATED\METHYLTESTOSTERONE
     Indication: Product used for unknown indication
     Dosage: 2 EVERY 1 DAYS?AMOUNT: 1 DOSAGE FORMS
     Route: 065
  97. PREMARIN WITH METHYLTESTOSTERONE [Suspect]
     Active Substance: ESTROGENS, CONJUGATED\METHYLTESTOSTERONE
     Indication: Abdominal discomfort
     Dosage: 2 EVERY 1 DAYS?AMOUNT: 1 DOSAGE FORMS
     Route: 065
  98. PREMARIN WITH METHYLTESTOSTERONE [Suspect]
     Active Substance: ESTROGENS, CONJUGATED\METHYLTESTOSTERONE
     Indication: Product used for unknown indication
     Dosage: 2 EVERY 1 DAYS?AMOUNT: 1 DOSAGE FORMS
     Route: 065
  99. PREMARIN WITH METHYLTESTOSTERONE [Suspect]
     Active Substance: ESTROGENS, CONJUGATED\METHYLTESTOSTERONE
     Indication: Abdominal discomfort
     Dosage: 2 EVERY 1 DAYS?AMOUNT: 150 MILLIGRAM
     Route: 065
  100. PREMARIN WITH METHYLTESTOSTERONE [Suspect]
     Active Substance: ESTROGENS, CONJUGATED\METHYLTESTOSTERONE
     Indication: Product used for unknown indication
     Dosage: 2 EVERY 1 DAYS?AMOUNT: 150 MILLIGRAM
     Route: 065
  101. PREMARIN WITH METHYLTESTOSTERONE [Suspect]
     Active Substance: ESTROGENS, CONJUGATED\METHYLTESTOSTERONE
     Indication: Abdominal discomfort
     Route: 065
  102. PREMARIN WITH METHYLTESTOSTERONE [Suspect]
     Active Substance: ESTROGENS, CONJUGATED\METHYLTESTOSTERONE
     Indication: Product used for unknown indication
     Route: 065
  103. PREMARIN WITH METHYLTESTOSTERONE [Suspect]
     Active Substance: ESTROGENS, CONJUGATED\METHYLTESTOSTERONE
     Indication: Abdominal discomfort
     Dosage: NOT SPECIFIED DOSAGE FORM
     Route: 065
  104. PREMARIN WITH METHYLTESTOSTERONE [Suspect]
     Active Substance: ESTROGENS, CONJUGATED\METHYLTESTOSTERONE
     Indication: Product used for unknown indication
     Dosage: NOT SPECIFIED DOSAGE FORM
     Route: 065
  105. PREMARIN WITH METHYLTESTOSTERONE [Suspect]
     Active Substance: ESTROGENS, CONJUGATED\METHYLTESTOSTERONE
     Indication: Abdominal discomfort
     Dosage: TABLETS DOSAGE FORM
     Route: 065
  106. PREMARIN WITH METHYLTESTOSTERONE [Suspect]
     Active Substance: ESTROGENS, CONJUGATED\METHYLTESTOSTERONE
     Indication: Product used for unknown indication
     Dosage: TABLETS DOSAGE FORM
     Route: 065
  107. ZOPICLONE [Suspect]
     Active Substance: ZOPICLONE
     Indication: Insomnia
     Dosage: 1 EVERY 1 DAYS?AMOUNT: 1 DOSAGE FORMS?TABLETS DOSAGE FORM
     Route: 065
  108. ZOPICLONE [Suspect]
     Active Substance: ZOPICLONE
     Indication: Insomnia
     Route: 065

REACTIONS (5)
  - Drug interaction [Unknown]
  - Drug level increased [Unknown]
  - Electrocardiogram QT prolonged [Unknown]
  - Product use issue [Unknown]
  - Schizoaffective disorder [Unknown]
